FAERS Safety Report 5042081-0 (Version None)
Quarter: 2006Q2

REPORT INFORMATION
  Report Type: 
  Country: None (occurrence: None)
  Receive Date: 20060630
  Receipt Date: 20060615
  Transmission Date: 20061013
  Serious: Yes (Other)
  Sender: FDA-Public Use
  Company Number: 2006P1000335

PATIENT
  Age: 37 Year
  Sex: Female

DRUGS (7)
  1. NICARDIPINE HYDROCHLORIDE [Suspect]
     Indication: PRE-ECLAMPSIA
     Dosage: IV
     Route: 042
  2. LEVOTHYROXINE SODIUM [Concomitant]
  3. DANATROL [Concomitant]
  4. BUPIVACAINE HYDROCHLORIDE [Concomitant]
  5. SUFENTANIL CITRATE [Concomitant]
  6. TRANDATE [Concomitant]
  7. BEREINERT [Concomitant]

REACTIONS (3)
  - CAESAREAN SECTION [None]
  - DRUG EXPOSURE DURING PREGNANCY [None]
  - FOETAL ARRHYTHMIA [None]
